FAERS Safety Report 18276008 (Version 1)
Quarter: 2020Q3

REPORT INFORMATION
  Report Type: Spontaneous
  Country: NL (occurrence: NL)
  Receive Date: 20200916
  Receipt Date: 20200916
  Transmission Date: 20201103
  Serious: Yes (Disabling)
  Sender: FDA-Public Use
  Company Number: NL-ACCORD-201221

PATIENT
  Sex: Male
  Weight: 90 kg

DRUGS (7)
  1. METOPROLOL. [Concomitant]
     Active Substance: METOPROLOL
     Dosage: MGA 25 MG (SUCCINATE) / BRAND NAME NOT SPECIFIED
  2. SIMVASTATIN. [Suspect]
     Active Substance: SIMVASTATIN
     Indication: LOW DENSITY LIPOPROTEIN INCREASED
     Dosage: TABLET FO 10MG / BRAND NAME NOT SPECIFIED,IN 2019 DOSE WAS INCREASED TO 20MG
     Dates: start: 2019, end: 20200701
  3. LISINOPRIL. [Concomitant]
     Active Substance: LISINOPRIL
     Dosage: 10MG, TABLET 10MG / BRAND NAME NOT SPECIFIED
  4. LORMETAZEPAM [Concomitant]
     Active Substance: LORMETAZEPAM
     Dosage: 2 MG DD,TABLET 2 MG / BRAND NAME NOT SPECIFIED
  5. ALPRAZOLAM. [Concomitant]
     Active Substance: ALPRAZOLAM
     Dosage: 2MG DD, TABLET MGA 2MG / BRAND NAME NOT SPECIFIED
  6. SIMVASTATIN. [Suspect]
     Active Substance: SIMVASTATIN
     Indication: LOW DENSITY LIPOPROTEIN INCREASED
     Dosage: TABLET FO 10MG / BRAND NAME NOT SPECIFIED,1XDD 10 MG
     Dates: start: 2019, end: 20200701
  7. AMITRIPTYLINE [Concomitant]
     Active Substance: AMITRIPTYLINE
     Dosage: 100MG,BRAND NAME NOT SPECIFIED

REACTIONS (2)
  - Axonal neuropathy [Not Recovered/Not Resolved]
  - Cognitive disorder [Not Recovered/Not Resolved]
